FAERS Safety Report 5832828-5 (Version None)
Quarter: 2008Q3

REPORT INFORMATION
  Report Type: 
  Country: None (occurrence: None)
  Receive Date: 20080804
  Receipt Date: 20080724
  Transmission Date: 20090109
  Serious: Yes (Other)
  Sender: FDA-Public Use
  Company Number: US-PFIZER INC-2008062105

PATIENT
  Sex: Male

DRUGS (3)
  1. XANAX [Suspect]
  2. LORTAB [Suspect]
  3. OXYCONTIN [Suspect]

REACTIONS (2)
  - BACK INJURY [None]
  - ROAD TRAFFIC ACCIDENT [None]
